FAERS Safety Report 5711813-8 (Version None)
Quarter: 2008Q2

REPORT INFORMATION
  Report Type: 
  Country: None (occurrence: None)
  Receive Date: 20080421
  Receipt Date: 20080409
  Transmission Date: 20081010
  Serious: Yes (Other)
  Sender: FDA-Public Use
  Company Number: US-PFIZER INC-2008031641

PATIENT
  Sex: Female
  Weight: 74.8 kg

DRUGS (6)
  1. DILANTIN [Suspect]
     Indication: CONVULSION
  2. SYNTHROID [Concomitant]
  3. FOSAMAX PLUS D [Concomitant]
  4. CALCIUM [Concomitant]
  5. TIMOLOL MALEATE [Concomitant]
  6. CYCLOSPORINE [Concomitant]
     Route: 031

REACTIONS (9)
  - ACCIDENTAL OVERDOSE [None]
  - ANTICONVULSANT DRUG LEVEL INCREASED [None]
  - ASTHENIA [None]
  - BLOOD THYROID STIMULATING HORMONE INCREASED [None]
  - CONFUSIONAL STATE [None]
  - DIZZINESS [None]
  - GLAUCOMA [None]
  - HEPATIC ENZYME INCREASED [None]
  - TREMOR [None]
